FAERS Safety Report 9563788 (Version 1)
Quarter: 2013Q3

REPORT INFORMATION
  Report Type: Spontaneous
  Country: US (occurrence: None)
  Receive Date: 20130926
  Receipt Date: 20130926
  Transmission Date: 20140515
  Serious: Yes (Death)
  Sender: FDA-Public Use
  Company Number: None

PATIENT
  Age: 44 Year
  Sex: Female
  Weight: 70.31 kg

DRUGS (1)
  1. VENLAFAXINE 150 MG [Suspect]
     Indication: DEPRESSION
     Route: 048
     Dates: start: 20120412, end: 20130822

REACTIONS (6)
  - Completed suicide [None]
  - Asphyxia [None]
  - Fear [None]
  - Restlessness [None]
  - Feeling abnormal [None]
  - Depressed mood [None]
